FAERS Safety Report 5014372-0 (Version None)
Quarter: 2006Q2

REPORT INFORMATION
  Report Type: 
  Country: None (occurrence: None)
  Receive Date: 20060525
  Receipt Date: 20060503
  Transmission Date: 20061013
  Serious: Yes (Hospitalization, Other)
  Sender: FDA-Public Use
  Company Number: MX200605001167

PATIENT
  Age: 63 Year
  Sex: Male

DRUGS (17)
  1. FORTEO [Suspect]
     Indication: OSTEOPOROSIS
     Dosage: 20 UG, DAILY (1/D), SUBCUTANEOUS
     Route: 058
     Dates: start: 20050308, end: 20060101
  2. FORTEO [Concomitant]
  3. CALTRATE (CALCIUM CARBONATE) [Concomitant]
  4. FOSAMAX /ITA/ (ALENDRONATE SODIUM) [Concomitant]
  5. DIABINESE [Concomitant]
  6. AVANDIA [Concomitant]
  7. GLUCOBAY /GFR/ (ACARBOSE) [Concomitant]
  8. TRAMADOL HCL [Concomitant]
  9. VIOXX /USA/ (ROFECOXIB) [Concomitant]
  10. PARECOXIB SODIUM [Concomitant]
  11. RIOPAN (MAGALDRATE) [Concomitant]
  12. OPTIMIN (LORATADINE) [Concomitant]
  13. OSTEO BI-FLEX (CHONDROITIN SULFATE, GLUCOSAMINE HYDROCHLORIDE) [Concomitant]
  14. TRADOL (TRAMADOL HYDROCHLORIDE) [Concomitant]
  15. ARCOXIA [Concomitant]
  16. ALFA D (ALFACALCIDOL) [Concomitant]
  17. DOLO-NEUROBION FORTE (CYANOCOBALAMIN, PARACETAMOL, PYRIDOXINE HYDROCHL [Concomitant]

REACTIONS (4)
  - FALL [None]
  - HIP FRACTURE [None]
  - MULTIPLE MYELOMA [None]
  - UPPER LIMB FRACTURE [None]
